FAERS Safety Report 12191008 (Version 1)
Quarter: 2016Q1

REPORT INFORMATION
  Report Type: Spontaneous
  Country: BR (occurrence: BR)
  Receive Date: 20160318
  Receipt Date: 20160318
  Transmission Date: 20160526
  Serious: Yes (Other)
  Sender: FDA-Public Use
  Company Number: BR-BIOTEST-T 134/16

PATIENT
  Age: 54 Year
  Sex: Female

DRUGS (1)
  1. IVIG US [Suspect]
     Active Substance: HUMAN IMMUNOGLOBULIN G
     Indication: MILLER FISHER SYNDROME

REACTIONS (4)
  - Headache [Recovered/Resolved]
  - Depressed level of consciousness [Recovered/Resolved]
  - Posterior reversible encephalopathy syndrome [Recovered/Resolved]
  - Generalised tonic-clonic seizure [Recovered/Resolved]
